FAERS Safety Report 8608154-8 (Version None)
Quarter: 2012Q3

REPORT INFORMATION
  Report Type: 
  Country: None (occurrence: None)
  Receive Date: 20120821
  Receipt Date: 20110715
  Transmission Date: 20120928
  Serious: Yes (Other)
  Sender: FDA-Public Use
  Company Number: US-TEVA-290644USA

PATIENT
  Sex: Female

DRUGS (2)
  1. FLUCONAZOLE [Suspect]
  2. AZITHROMYCIN [Concomitant]

REACTIONS (4)
  - DIARRHOEA [None]
  - PHARYNGEAL OEDEMA [None]
  - PAIN [None]
  - RASH [None]
